FAERS Safety Report 8584679-9 (Version None)
Quarter: 2012Q3

REPORT INFORMATION
  Report Type: 
  Country: None (occurrence: None)
  Receive Date: 20120810
  Receipt Date: 20120731
  Transmission Date: 20120928
  Serious: Yes (Hospitalization, Other)
  Sender: FDA-Public Use
  Company Number: BR-SANOFI-AVENTIS-2012SA054968

PATIENT
  Age: 11 Year
  Sex: Female
  Weight: 35 kg

DRUGS (4)
  1. LANTUS [Suspect]
     Route: 058
  2. AUTOPEN 24 [Suspect]
     Indication: DEVICE THERAPY
  3. LANTUS [Suspect]
     Route: 058
  4. AUTOPEN 24 [Suspect]

REACTIONS (4)
  - DEHYDRATION [None]
  - DIABETIC KETOACIDOSIS [None]
  - VOMITING [None]
  - HYPERGLYCAEMIA [None]
